FAERS Safety Report 7535004-3 (Version None)
Quarter: 2011Q2

REPORT INFORMATION
  Report Type: 
  Country: None (occurrence: None)
  Receive Date: 20110609
  Receipt Date: 20110602
  Transmission Date: 20111010
  Serious: No
  Sender: FDA-Public Use
  Company Number: US-BIOGENIDEC-2010BI041881

PATIENT
  Sex: Female

DRUGS (1)
  1. TYSABRI [Suspect]
     Indication: MULTIPLE SCLEROSIS
     Route: 042
     Dates: start: 20100910

REACTIONS (7)
  - BONE PAIN [None]
  - HEADACHE [None]
  - PAIN [None]
  - DEVICE DIFFICULT TO USE [None]
  - DIZZINESS [None]
  - INFUSION SITE PAIN [None]
  - MEMORY IMPAIRMENT [None]
